FAERS Safety Report 4743566-4 (Version None)
Quarter: 2005Q3

REPORT INFORMATION
  Report Type: 
  Country: None (occurrence: None)
  Receive Date: 20050809
  Receipt Date: 20050802
  Transmission Date: 20060218
  Serious: Yes (Other)
  Sender: FDA-Public Use
  Company Number: 2005-08-0292

PATIENT
  Sex: Female

DRUGS (2)
  1. ALBUTEROL SULFATE HFA [Suspect]
     Indication: COUGH
     Dosage: 100MCG/DOSE ORAL AER INH
     Route: 055
     Dates: start: 20050608, end: 20050615
  2. ALBUTEROL SULFATE HFA [Suspect]
     Indication: DYSPNOEA
     Dosage: 100MCG/DOSE ORAL AER INH
     Route: 055
     Dates: start: 20050608, end: 20050615

REACTIONS (1)
  - DISTURBANCE IN ATTENTION [None]
